FAERS Safety Report 15677986 (Version 2)
Quarter: 2019Q1

REPORT INFORMATION
  Report Type: Spontaneous
  Country: JP (occurrence: JP)
  Receive Date: 20181130
  Receipt Date: 20190308
  Transmission Date: 20190417
  Serious: Yes (Disabling, Other)
  Sender: FDA-Public Use
  Company Number: JP-009507513-1811JPN003195J

PATIENT
  Age: 68 Year
  Sex: Male
  Weight: 42 kg

DRUGS (8)
  1. CUBICIN [Suspect]
     Active Substance: DAPTOMYCIN
     Dosage: 250 MILLIGRAM, QD
     Route: 041
     Dates: start: 20180927, end: 20181012
  2. CIPROXAN [Concomitant]
     Active Substance: CIPROFLOXACIN
     Indication: SKIN INFECTION
     Dosage: 200 MILLIGRAM, QD
     Route: 048
     Dates: start: 20180917, end: 20180930
  3. TAZOPIPE [Concomitant]
     Active Substance: PIPERACILLIN SODIUM\TAZOBACTAM SODIUM
     Indication: SKIN INFECTION
     Dosage: 2.25 GRAM, TID
     Route: 041
     Dates: start: 20180906, end: 20180910
  4. FLAGYL [Concomitant]
     Active Substance: METRONIDAZOLE\METRONIDAZOLE HYDROCHLORIDE
     Indication: SKIN INFECTION
     Dosage: 500 MILLIGRAM, TID
     Route: 048
     Dates: start: 20180910, end: 20180930
  5. SIVEXTRO [Concomitant]
     Active Substance: TEDIZOLID PHOSPHATE
     Indication: SKIN INFECTION
     Dosage: 200 MILLIGRAM, QD
     Route: 048
     Dates: start: 20180917, end: 20180926
  6. CUBICIN [Suspect]
     Active Substance: DAPTOMYCIN
     Indication: SKIN INFECTION
     Dosage: 200 MILLIGRAM, QD
     Route: 041
     Dates: start: 20180906, end: 20180916
  7. METRONIDAZOLE. [Concomitant]
     Active Substance: METRONIDAZOLE
     Dosage: UNK
     Route: 065
  8. CIPROXAN [Concomitant]
     Active Substance: CIPROFLOXACIN
     Indication: SKIN INFECTION
     Dosage: 400 MILLIGRAM, QD
     Route: 041
     Dates: start: 20180910, end: 20180916

REACTIONS (5)
  - Nausea [Recovered/Resolved]
  - Decreased appetite [Unknown]
  - Leg amputation [Not Recovered/Not Resolved]
  - Platelet count decreased [Recovered/Resolved]
  - White blood cell count decreased [Unknown]

NARRATIVE: CASE EVENT DATE: 20180923
